FAERS Safety Report 8352096-2 (Version None)
Quarter: 2012Q2

REPORT INFORMATION
  Report Type: 
  Country: None (occurrence: None)
  Receive Date: 20120511
  Receipt Date: 20120502
  Transmission Date: 20120825
  Serious: No
  Sender: FDA-Public Use
  Company Number: US-JNJFOC-20120504476

PATIENT
  Sex: Male
  Weight: 70.31 kg

DRUGS (2)
  1. FENTANYL CITRATE [Suspect]
     Indication: BACK PAIN
     Route: 062
     Dates: start: 20090101
  2. NORCO [Concomitant]
     Indication: BREAKTHROUGH PAIN
     Dosage: 10-500 MG
     Route: 048
     Dates: start: 20090101

REACTIONS (3)
  - POOR QUALITY DRUG ADMINISTERED [None]
  - ADVERSE EVENT [None]
  - PRODUCT QUALITY ISSUE [None]
